FAERS Safety Report 8885569 (Version 5)
Quarter: 2014Q1

REPORT INFORMATION
  Report Type: Spontaneous
  Country: NL (occurrence: NL)
  Receive Date: 20121102
  Receipt Date: 20140211
  Transmission Date: 20141002
  Serious: Yes (Death, Hospitalization, Other)
  Sender: FDA-Public Use
  Company Number: NL-BIOGENIDEC-2012BI048387

PATIENT
  Age: 47 Year
  Sex: Female

DRUGS (4)
  1. TYSABRI [Suspect]
     Indication: MULTIPLE SCLEROSIS
     Route: 042
     Dates: start: 20080901, end: 20121023
  2. BISACODYL [Concomitant]
  3. CITALOPRAM [Concomitant]
  4. ZOPLICON [Concomitant]

REACTIONS (5)
  - Progressive multifocal leukoencephalopathy [Unknown]
  - Proteus infection [Unknown]
  - Urinary tract infection [Unknown]
  - Bladder adenocarcinoma stage III [Fatal]
  - Staphylococcal infection [Unknown]
